FAERS Safety Report 13324885 (Version 9)
Quarter: 2018Q1

REPORT INFORMATION
  Report Type: Report from Study
  Country: US (occurrence: CA)
  Receive Date: 20170310
  Receipt Date: 20180327
  Transmission Date: 20180508
  Serious: Yes (Other)
  Sender: FDA-Public Use
  Company Number: US-SUNOVION-2017SUN000989

PATIENT
  Age: 56 Year
  Sex: Male

DRUGS (26)
  1. XOLAIR [Suspect]
     Active Substance: OMALIZUMAB
     Dosage: UNK; REGIMEN #5
     Route: 058
     Dates: start: 20160927
  2. XOLAIR [Suspect]
     Active Substance: OMALIZUMAB
     Dosage: UNK; REGIMEN #8
     Route: 058
     Dates: start: 20161108
  3. XOLAIR [Suspect]
     Active Substance: OMALIZUMAB
     Dosage: UNK; REGIMEN #11
     Route: 058
     Dates: start: 20161220
  4. FLOVENT [Concomitant]
     Active Substance: FLUTICASONE PROPIONATE
     Dosage: 250 ?G, UNK
  5. XOLAIR [Suspect]
     Active Substance: OMALIZUMAB
     Dosage: UNK; REGIMEN #2
     Route: 058
     Dates: start: 20151028
  6. XOLAIR [Suspect]
     Active Substance: OMALIZUMAB
     Dosage: UNK; REGIMEN #7
     Route: 058
     Dates: start: 20161025
  7. XOLAIR [Suspect]
     Active Substance: OMALIZUMAB
     Dosage: UNK; REGIMEN #10
     Route: 058
     Dates: start: 20161206
  8. XOLAIR [Suspect]
     Active Substance: OMALIZUMAB
     Dosage: UNK; REGIMEN #15
     Route: 058
     Dates: start: 20170523
  9. XOLAIR [Suspect]
     Active Substance: OMALIZUMAB
     Dosage: UNK; REGIMEN #16
     Route: 058
     Dates: start: 20171023
  10. XOLAIR [Suspect]
     Active Substance: OMALIZUMAB
     Dosage: UNK; REGIMEN #17
     Route: 058
     Dates: start: 20171106
  11. XOLAIR [Suspect]
     Active Substance: OMALIZUMAB
     Dosage: UNK; REGIMEN #18
     Route: 058
     Dates: start: 20180313
  12. XOLAIR [Suspect]
     Active Substance: OMALIZUMAB
     Dosage: UNK; REGIMEN #14
     Route: 058
     Dates: start: 20170411
  13. BRICANYL [Concomitant]
     Active Substance: TERBUTALINE SULFATE
     Dosage: UNK
  14. XOLAIR [Suspect]
     Active Substance: OMALIZUMAB
     Dosage: UNK; REGIMEN #6
     Route: 058
     Dates: start: 20161011
  15. SEREVENT DISKUS [Concomitant]
     Active Substance: SALMETEROL XINAFOATE
     Dosage: 50 ?G, UNK
  16. VENTOLIN [Concomitant]
     Active Substance: ALBUTEROL SULFATE
     Dosage: UNK
  17. SPIRIVA [Concomitant]
     Active Substance: TIOTROPIUM BROMIDE MONOHYDRATE
     Dosage: UNK
  18. XOLAIR [Suspect]
     Active Substance: OMALIZUMAB
     Dosage: UNK; REGIMEN #4
     Route: 058
     Dates: start: 20160315
  19. XOLAIR [Suspect]
     Active Substance: OMALIZUMAB
     Dosage: UNK; REGIMEN #9
     Route: 058
     Dates: start: 20161122
  20. SYMBICORT [Concomitant]
     Active Substance: BUDESONIDE\FORMOTEROL FUMARATE DIHYDRATE
     Dosage: UNK
  21. XOLAIR [Suspect]
     Active Substance: OMALIZUMAB
     Dosage: UNK; REGIMEN #3
     Route: 058
     Dates: start: 20160119
  22. XOLAIR [Suspect]
     Active Substance: OMALIZUMAB
     Dosage: UNK; REGIMEN #12
     Route: 058
     Dates: start: 20170202
  23. GLYCOPYRROLATE. [Suspect]
     Active Substance: GLYCOPYRROLATE
     Indication: PRODUCT USED FOR UNKNOWN INDICATION
     Dosage: 50 ?G, QD
     Route: 065
  24. XOLAIR [Suspect]
     Active Substance: OMALIZUMAB
     Indication: ASTHMA
     Dosage: 375 MG, BIW; REGIMEN #1
     Route: 058
     Dates: start: 20150722
  25. XOLAIR [Suspect]
     Active Substance: OMALIZUMAB
     Dosage: UNK; REGIMEN #13
     Route: 058
     Dates: start: 20170313
  26. SINGULAIR [Concomitant]
     Active Substance: MONTELUKAST SODIUM
     Dosage: 10 MG, UNK

REACTIONS (13)
  - Bronchitis [Unknown]
  - Forced expiratory volume decreased [Unknown]
  - Loss of consciousness [Unknown]
  - Dyspnoea [Not Recovered/Not Resolved]
  - Blood pressure increased [Not Recovered/Not Resolved]
  - Asthma [Not Recovered/Not Resolved]
  - White blood cell count increased [Unknown]
  - Skin induration [Unknown]
  - Sputum discoloured [Not Recovered/Not Resolved]
  - Productive cough [Not Recovered/Not Resolved]
  - Pulmonary function test decreased [Unknown]
  - Wheezing [Unknown]
  - Sinusitis [Unknown]

NARRATIVE: CASE EVENT DATE: 20150902
